FAERS Safety Report 16911408 (Version 1)
Quarter: 2019Q4

REPORT INFORMATION
  Report Type: Spontaneous
  Country: US (occurrence: US)
  Receive Date: 20190821
  Receipt Date: 20190821
  Transmission Date: 20200122
  Serious: No
  Sender: FDA-Public Use
  Company Number: None

PATIENT
  Age: 63 Year
  Sex: Female

DRUGS (1)
  1. HUMIRA [Suspect]
     Active Substance: ADALIMUMAB
     Indication: ANKYLOSING SPONDYLITIS
     Route: 058
     Dates: start: 20190626, end: 201908

REACTIONS (5)
  - Headache [None]
  - Paraesthesia [None]
  - Skin discolouration [None]
  - Gastrointestinal disorder [None]
  - Visual impairment [None]

NARRATIVE: CASE EVENT DATE: 20190630
